FAERS Safety Report 9386659 (Version 2)
Quarter: 2013Q3

REPORT INFORMATION
  Report Type: Report from Study
  Country: EC (occurrence: EC)
  Receive Date: 20130708
  Receipt Date: 20130809
  Transmission Date: 20140515
  Serious: Yes (Hospitalization, Other)
  Sender: FDA-Public Use
  Company Number: PHHY2013EC071399

PATIENT
  Age: 85 Year
  Sex: Female

DRUGS (3)
  1. STALEVO [Suspect]
     Indication: PARKINSON^S DISEASE
     Dosage: 50/12.5/200 MG, BID
     Route: 048
     Dates: start: 2012
  2. SOMAZINA [Concomitant]
     Dosage: 8 DRP, BID
     Route: 048
  3. METFORMIN [Concomitant]
     Dosage: 500 MG, QD
     Route: 048
     Dates: end: 20130421

REACTIONS (7)
  - Diabetic coma [Recovered/Resolved]
  - Hypoglycaemia [Recovered/Resolved]
  - Depressed level of consciousness [Recovered/Resolved]
  - Cerebral hypoperfusion [Unknown]
  - Urinary tract infection [Unknown]
  - Dizziness [Unknown]
  - Asthenia [Unknown]
